FAERS Safety Report 6930131-3 (Version None)
Quarter: 2010Q3

REPORT INFORMATION
  Report Type: 
  Country: None (occurrence: None)
  Receive Date: 20100818
  Receipt Date: 20100813
  Transmission Date: 20110219
  Serious: Yes (Death, Hospitalization)
  Sender: FDA-Public Use
  Company Number: DE-BRISTOL-MYERS SQUIBB COMPANY-14985360

PATIENT
  Age: 75 Year
  Sex: Male

DRUGS (3)
  1. CETUXIMAB [Suspect]
     Indication: METASTATIC GASTRIC CANCER
     Dosage: CETUXIMAB 2MG/ML
     Route: 042
     Dates: start: 20090305, end: 20090402
  2. CISPLATIN [Suspect]
     Indication: METASTATIC GASTRIC CANCER
     Route: 042
     Dates: start: 20090305, end: 20090402
  3. TAXOTERE [Suspect]
     Indication: METASTATIC GASTRIC CANCER
     Route: 042
     Dates: start: 20090305, end: 20090402

REACTIONS (9)
  - CONVULSION [None]
  - DEATH [None]
  - DEVICE RELATED INFECTION [None]
  - DIARRHOEA [None]
  - FALL [None]
  - FEBRILE NEUTROPENIA [None]
  - GENERAL PHYSICAL HEALTH DETERIORATION [None]
  - NEUTROPENIA [None]
  - VISUAL ACUITY REDUCED [None]
